FAERS Safety Report 6906191-2 (Version None)
Quarter: 2010Q3

REPORT INFORMATION
  Report Type: 
  Country: None (occurrence: None)
  Receive Date: 20100804
  Receipt Date: 20100614
  Transmission Date: 20110219
  Serious: Yes (Other)
  Sender: FDA-Public Use
  Company Number: PHHO2009DE06429

PATIENT

DRUGS (8)
  1. ALISKIREN ALI+TAB+HT [Suspect]
     Dosage: NO TREATMENT
     Dates: start: 20090303, end: 20090311
  2. ALISKIREN ALI+TAB+HT [Suspect]
     Dosage: UNK
     Dates: start: 20090312
  3. AMLODIPINE [Suspect]
     Indication: HYPERTENSION
     Dosage: NO TREATMENT
     Route: 048
     Dates: start: 20090303, end: 20090311
  4. AMLODIPINE [Suspect]
     Dosage: UNK
     Dates: start: 20090312
  5. HYDROCHLOROTHIAZIDE [Suspect]
     Indication: HYPERTENSION
     Dosage: NO TREATMENT
     Route: 048
     Dates: start: 20090303, end: 20090311
  6. HYDROCHLOROTHIAZIDE [Suspect]
     Dosage: UNK
     Dates: start: 20090312
  7. METOPROLOL [Concomitant]
     Indication: HYPERTENSION
     Dosage: UNK
  8. SPIRONOLACTONE [Concomitant]

REACTIONS (9)
  - BLOOD PRESSURE FLUCTUATION [None]
  - CHEST DISCOMFORT [None]
  - FLUSHING [None]
  - HEADACHE [None]
  - HYPERTENSION [None]
  - MALAISE [None]
  - ROAD TRAFFIC ACCIDENT [None]
  - SUPRAVENTRICULAR EXTRASYSTOLES [None]
  - SYNCOPE [None]
